FAERS Safety Report 14650374 (Version 2)
Quarter: 2018Q2

REPORT INFORMATION
  Report Type: Spontaneous
  Country: PT (occurrence: PT)
  Receive Date: 20180316
  Receipt Date: 20180521
  Transmission Date: 20180711
  Serious: Yes (Hospitalization, Other)
  Sender: FDA-Public Use
  Company Number: PT-SHIRE-PT201801544

PATIENT

DRUGS (5)
  1. PREDNISOLONE. [Concomitant]
     Active Substance: PREDNISOLONE
     Indication: PRODUCT USED FOR UNKNOWN INDICATION
  2. AZATHIOPRINE. [Concomitant]
     Active Substance: AZATHIOPRINE
     Indication: PRODUCT USED FOR UNKNOWN INDICATION
  3. 476 (MESALAZINE/MESALAMINE) [Suspect]
     Active Substance: MESALAMINE
     Indication: INFLAMMATORY BOWEL DISEASE
  4. COLCHICINE. [Concomitant]
     Active Substance: COLCHICINE
     Indication: PRODUCT USED FOR UNKNOWN INDICATION
  5. 476 (MESALAZINE/MESALAMINE) [Suspect]
     Active Substance: MESALAMINE
     Indication: CROHN^S DISEASE
     Route: 065

REACTIONS (19)
  - Myocardial oedema [Recovered/Resolved]
  - Chest pain [Recovered/Resolved]
  - Breath sounds abnormal [Recovered/Resolved]
  - Ventricular hypokinesia [Recovered/Resolved]
  - Pleural effusion [Recovered/Resolved]
  - Hypersensitivity [Recovered/Resolved]
  - Off label use [Unknown]
  - Pericardial fibrosis [Recovered/Resolved]
  - Cardiac tamponade [Recovered/Resolved]
  - Prohormone brain natriuretic peptide increased [Recovered/Resolved]
  - Ejection fraction decreased [Recovered/Resolved]
  - Myocarditis [Recovered/Resolved]
  - Pericardial effusion [Recovering/Resolving]
  - Troponin I increased [Recovered/Resolved]
  - Ventricular dysfunction [Recovered/Resolved]
  - Dyspnoea [Unknown]
  - Electrocardiogram ST segment elevation [Recovered/Resolved]
  - Systolic dysfunction [Recovered/Resolved]
  - Dyspnoea exertional [Recovered/Resolved]
